FAERS Safety Report 15924023 (Version 1)
Quarter: 2019Q1

REPORT INFORMATION
  Report Type: Spontaneous
  Country: SE (occurrence: SE)
  Receive Date: 20190206
  Receipt Date: 20190206
  Transmission Date: 20190417
  Serious: Yes (Disabling)
  Sender: FDA-Public Use
  Company Number: SE-GLAXOSMITHKLINE-SE2019018551

PATIENT
  Age: 44 Year
  Sex: Female

DRUGS (1)
  1. IMIGRAN [Suspect]
     Active Substance: SUMATRIPTAN SUCCINATE
     Indication: HEMIPLEGIC MIGRAINE
     Dosage: HAVE TAKEN INJ. IMIGRAN 160620, 170522, 180819
     Route: 065
     Dates: start: 20190113, end: 20190113

REACTIONS (1)
  - Tinnitus [Not Recovered/Not Resolved]

NARRATIVE: CASE EVENT DATE: 20190113
